FAERS Safety Report 23245326 (Version 1)
Quarter: 2023Q4

REPORT INFORMATION
  Report Type: Spontaneous
  Country: US (occurrence: US)
  Receive Date: 20231130
  Receipt Date: 20231130
  Transmission Date: 20240109
  Serious: No
  Sender: FDA-Public Use
  Company Number: US-ALVOGEN-2022088520

PATIENT
  Sex: Female

DRUGS (1)
  1. TERIPARATIDE [Suspect]
     Active Substance: TERIPARATIDE
     Indication: Osteoporosis
     Dosage: POTENCY: 250 UG IN 1ML?EXPIRATION DATE- 31-JAN-2024

REACTIONS (3)
  - Device operational issue [Unknown]
  - Device malfunction [Unknown]
  - Product dose omission issue [Unknown]
